FAERS Safety Report 23234103 (Version 3)
Quarter: 2023Q4

REPORT INFORMATION
  Report Type: Spontaneous
  Country: JP (occurrence: JP)
  Receive Date: 20231128
  Receipt Date: 20231229
  Transmission Date: 20240109
  Serious: Yes (Death, Life-Threatening)
  Sender: FDA-Public Use
  Company Number: JP-VERICEL-JP-VCEL-23-000314

PATIENT
  Age: 88 Year
  Sex: Female
  Weight: 45.3 kg

DRUGS (5)
  1. BROMELAINS [Suspect]
     Active Substance: BROMELAINS
     Indication: Burns third degree
     Dosage: 30 GRAM; 6 BOTTLES
     Route: 061
     Dates: start: 20230830, end: 20230830
  2. MAGNESIUM OXIDE [Concomitant]
     Active Substance: MAGNESIUM OXIDE
     Indication: Constipation
     Dosage: 750 MILLIGRAM; 250 MG/8 HOURS
     Route: 048
     Dates: start: 20230809
  3. ELOBIXIBAT [Concomitant]
     Active Substance: ELOBIXIBAT
     Indication: Constipation
     Dosage: 10 MILLIGRAM
     Route: 048
     Dates: start: 20230809
  4. CADEX [IODINE] [Concomitant]
     Indication: Infection
     Dosage: UNK
     Route: 062
     Dates: start: 20230815
  5. NEGMIN SUGAR [Concomitant]
     Indication: Infection
     Dosage: UNK
     Route: 062
     Dates: start: 20230815

REACTIONS (2)
  - Shock haemorrhagic [Recovered/Resolved]
  - Death [Fatal]

NARRATIVE: CASE EVENT DATE: 20230830
